FAERS Safety Report 23724119 (Version 1)
Quarter: 2024Q2

REPORT INFORMATION
  Report Type: Spontaneous
  Country: AR (occurrence: AR)
  Receive Date: 20240409
  Receipt Date: 20240409
  Transmission Date: 20240716
  Serious: Yes (Other)
  Sender: FDA-Public Use
  Company Number: AR-002147023-NVSC2024AR073771

PATIENT
  Sex: Female

DRUGS (1)
  1. TRILEPTAL [Suspect]
     Active Substance: OXCARBAZEPINE
     Indication: Epilepsy
     Dosage: 600 MG, BID (600MG/2) (TWO IN THE MORNING AND TWO AT NIGHT)
     Route: 048
     Dates: start: 1998

REACTIONS (4)
  - Epilepsy [Recovering/Resolving]
  - Mood altered [Unknown]
  - Panic reaction [Unknown]
  - Aphasia [Unknown]
